APPROVED DRUG PRODUCT: DOXYCYCLINE
Active Ingredient: DOXYCYCLINE
Strength: EQ 75MG BASE
Dosage Form/Route: CAPSULE;ORAL
Application: A204234 | Product #002 | TE Code: AB
Applicant: LUPIN LTD
Approved: Mar 5, 2014 | RLD: No | RS: No | Type: RX